FAERS Safety Report 21515938 (Version 2)
Quarter: 2022Q4

REPORT INFORMATION
  Report Type: Report from Study
  Country: GB (occurrence: GB)
  Receive Date: 20221027
  Receipt Date: 20221215
  Transmission Date: 20230112
  Serious: Yes (Hospitalization)
  Sender: FDA-Public Use
  Company Number: GB-KYOWAKIRIN-2022BKK016662

PATIENT

DRUGS (4)
  1. BUROSUMAB [Suspect]
     Active Substance: BUROSUMAB
     Indication: Product used for unknown indication
     Dosage: 30 MG
     Route: 058
     Dates: start: 20221019
  2. BUROSUMAB [Suspect]
     Active Substance: BUROSUMAB
     Dosage: 20 MG
     Route: 058
  3. BUROSUMAB [Suspect]
     Active Substance: BUROSUMAB
     Dosage: 25 MG, 1X/2 WEEKS
     Route: 065
  4. BUROSUMAB [Suspect]
     Active Substance: BUROSUMAB
     Dosage: 30 MG, 1X/2 WEEKS
     Route: 065
     Dates: start: 20221214

REACTIONS (3)
  - Asthma [Unknown]
  - Ear infection [Unknown]
  - Cough [Not Recovered/Not Resolved]

NARRATIVE: CASE EVENT DATE: 20221001
